FAERS Safety Report 10254674 (Version 3)
Quarter: 2014Q4

REPORT INFORMATION
  Report Type: Spontaneous
  Country: CN (occurrence: CN)
  Receive Date: 20140624
  Receipt Date: 20141113
  Transmission Date: 20150528
  Serious: Yes (Hospitalization)
  Sender: FDA-Public Use
  Company Number: CN-ASTRAZENECA-2014SE13349

PATIENT
  Age: 78 Year
  Sex: Male

DRUGS (27)
  1. BETALOC ZOK [Suspect]
     Active Substance: METOPROLOL SUCCINATE
     Indication: SINUS ARRHYTHMIA
     Route: 048
  2. BETALOC ZOK [Suspect]
     Active Substance: METOPROLOL SUCCINATE
     Indication: ATRIAL TACHYCARDIA
     Route: 048
  3. BETALOC ZOK [Suspect]
     Active Substance: METOPROLOL SUCCINATE
     Indication: PALPITATIONS
     Route: 048
  4. ADALAT [Concomitant]
     Active Substance: NIFEDIPINE
     Indication: HYPERTENSION
     Dates: start: 2012
  5. BETALOC ZOK [Suspect]
     Active Substance: METOPROLOL SUCCINATE
     Indication: ATRIAL TACHYCARDIA
     Route: 048
     Dates: start: 201402
  6. BETALOC ZOK [Suspect]
     Active Substance: METOPROLOL SUCCINATE
     Indication: ATRIAL TACHYCARDIA
     Route: 048
     Dates: start: 20140218
  7. BETALOC ZOK [Suspect]
     Active Substance: METOPROLOL SUCCINATE
     Indication: ATRIAL TACHYCARDIA
     Route: 048
  8. BETALOC [Suspect]
     Active Substance: METOPROLOL TARTRATE
     Indication: PALPITATIONS
     Route: 048
     Dates: start: 201401, end: 201402
  9. BETALOC [Suspect]
     Active Substance: METOPROLOL TARTRATE
     Indication: EXTRASYSTOLES
     Route: 048
  10. BETALOC [Suspect]
     Active Substance: METOPROLOL TARTRATE
     Indication: ATRIAL TACHYCARDIA
     Route: 048
  11. BETALOC ZOK [Suspect]
     Active Substance: METOPROLOL SUCCINATE
     Indication: EXTRASYSTOLES
     Route: 048
  12. BETALOC [Suspect]
     Active Substance: METOPROLOL TARTRATE
     Indication: SINUS ARRHYTHMIA
     Route: 048
     Dates: start: 201401, end: 201402
  13. BETALOC [Suspect]
     Active Substance: METOPROLOL TARTRATE
     Indication: ATRIAL TACHYCARDIA
     Route: 048
     Dates: start: 201401, end: 201402
  14. BETALOC [Suspect]
     Active Substance: METOPROLOL TARTRATE
     Indication: PALPITATIONS
     Route: 048
  15. BETALOC ZOK [Suspect]
     Active Substance: METOPROLOL SUCCINATE
     Indication: PALPITATIONS
     Route: 048
     Dates: start: 201402
  16. BETALOC ZOK [Suspect]
     Active Substance: METOPROLOL SUCCINATE
     Indication: EXTRASYSTOLES
     Route: 048
     Dates: start: 20140218
  17. BETALOC ZOK [Suspect]
     Active Substance: METOPROLOL SUCCINATE
     Indication: EXTRASYSTOLES
     Route: 048
  18. BETALOC [Suspect]
     Active Substance: METOPROLOL TARTRATE
     Indication: EXTRASYSTOLES
     Route: 048
     Dates: start: 201401, end: 201402
  19. BETALOC [Suspect]
     Active Substance: METOPROLOL TARTRATE
     Indication: SINUS ARRHYTHMIA
     Route: 048
  20. BETALOC ZOK [Suspect]
     Active Substance: METOPROLOL SUCCINATE
     Indication: EXTRASYSTOLES
     Route: 048
     Dates: start: 201402
  21. BETALOC ZOK [Suspect]
     Active Substance: METOPROLOL SUCCINATE
     Indication: PALPITATIONS
     Route: 048
     Dates: start: 20140218
  22. BETALOC ZOK [Suspect]
     Active Substance: METOPROLOL SUCCINATE
     Indication: PALPITATIONS
     Route: 048
  23. ACARBOSE. [Concomitant]
     Active Substance: ACARBOSE
     Indication: BLOOD GLUCOSE ABNORMAL
  24. TRADITIONAL CHINESE HERBS [Concomitant]
  25. BETALOC ZOK [Suspect]
     Active Substance: METOPROLOL SUCCINATE
     Indication: SINUS ARRHYTHMIA
     Route: 048
     Dates: start: 20140218
  26. BETALOC ZOK [Suspect]
     Active Substance: METOPROLOL SUCCINATE
     Indication: SINUS ARRHYTHMIA
     Route: 048
  27. BETALOC ZOK [Suspect]
     Active Substance: METOPROLOL SUCCINATE
     Indication: SINUS ARRHYTHMIA
     Route: 048
     Dates: start: 201402

REACTIONS (3)
  - Drug ineffective [Not Recovered/Not Resolved]
  - Heart rate irregular [Unknown]
  - Off label use [Not Recovered/Not Resolved]

NARRATIVE: CASE EVENT DATE: 201401
